FAERS Safety Report 9474284 (Version 2)
Quarter: 2013Q4

REPORT INFORMATION
  Report Type: Spontaneous
  Country: JP (occurrence: JP)
  Receive Date: 20130823
  Receipt Date: 20131021
  Transmission Date: 20140711
  Serious: Yes (Hospitalization, Other)
  Sender: FDA-Public Use
  Company Number: PHHY2013JP091464

PATIENT
  Age: 77 Year
  Sex: Male

DRUGS (2)
  1. EXELON PATCH [Suspect]
     Indication: DEMENTIA ALZHEIMER^S TYPE
     Dosage: 4.5 MG, DAILY
     Route: 062
     Dates: start: 201306
  2. EXELON PATCH [Suspect]
     Dosage: 9 MG, DAILY
     Route: 062
     Dates: start: 201307

REACTIONS (6)
  - Pneumonia aspiration [Not Recovered/Not Resolved]
  - Pyrexia [Unknown]
  - General physical health deterioration [Unknown]
  - Dysphagia [Unknown]
  - Cerebral infarction [Not Recovered/Not Resolved]
  - Concomitant disease progression [Unknown]
